FAERS Safety Report 19430330 (Version 1)
Quarter: 2021Q2

REPORT INFORMATION
  Report Type: Spontaneous
  Country: US (occurrence: US)
  Receive Date: 20210617
  Receipt Date: 20210617
  Transmission Date: 20210717
  Serious: No
  Sender: FDA-Public Use
  Company Number: US-ACCORD-213408

PATIENT
  Age: 79 Year
  Sex: Female
  Weight: 74.84 kg

DRUGS (2)
  1. CAPECITABINE ACCORD [Suspect]
     Active Substance: CAPECITABINE
     Indication: COLON CANCER
     Dosage: 21 DAY ON AND 7 DAYS OFF
     Route: 048
     Dates: start: 20201123
  2. CAPECITABINE SUN PHARMACEUTICAL [Suspect]
     Active Substance: CAPECITABINE
     Indication: COLON CANCER
     Dosage: STRENGTH 500 MG, 1500 MG TWICE DAY TO COMPLETE THE LAST 2 DAYS IF THE CYCLE
     Dates: start: 20201123

REACTIONS (2)
  - Eye pruritus [Recovered/Resolved]
  - Eyelid margin crusting [Not Recovered/Not Resolved]

NARRATIVE: CASE EVENT DATE: 2020
